FAERS Safety Report 7944050-7 (Version None)
Quarter: 2011Q4

REPORT INFORMATION
  Report Type: 
  Country: None (occurrence: None)
  Receive Date: 20111128
  Receipt Date: 20111118
  Transmission Date: 20120403
  Serious: Yes (Other)
  Sender: FDA-Public Use
  Company Number: US-ASTRAZENECA-2011SE70763

PATIENT
  Age: 84 Year
  Sex: Female

DRUGS (1)
  1. NEXIUM [Suspect]
     Route: 048

REACTIONS (3)
  - MACULAR DEGENERATION [None]
  - RHEUMATOID ARTHRITIS [None]
  - HEADACHE [None]
